FAERS Safety Report 25838423 (Version 1)
Quarter: 2025Q3

REPORT INFORMATION
  Report Type: Other
  Country: US (occurrence: CA)
  Receive Date: 20250923
  Receipt Date: 20250923
  Transmission Date: 20251021
  Serious: Yes (Other)
  Sender: HLS THERAPEUTICS
  Company Number: US-HLS-202500320

PATIENT
  Age: 47 Year
  Sex: Male

DRUGS (1)
  1. CLOZAPINE [Suspect]
     Active Substance: CLOZAPINE
     Indication: Schizophrenia
     Route: 065

REACTIONS (9)
  - Anger [Unknown]
  - Anxiety [Unknown]
  - Aspiration [Unknown]
  - Hallucination, auditory [Unknown]
  - Salivary hypersecretion [Unknown]
  - Dysphagia [Unknown]
  - Phagophobia [Unknown]
  - Suspiciousness [Unknown]
  - Hallucination, visual [Unknown]
